FAERS Safety Report 8103525-0 (Version None)
Quarter: 2012Q1

REPORT INFORMATION
  Report Type: 
  Country: None (occurrence: None)
  Receive Date: 20120201
  Receipt Date: 20120127
  Transmission Date: 20120608
  Serious: Yes (Other)
  Sender: FDA-Public Use
  Company Number: PHHY2011US23573

PATIENT
  Sex: Male

DRUGS (3)
  1. STEROIDS [Concomitant]
  2. EXJADE [Suspect]
     Indication: APLASTIC ANAEMIA
     Dosage: 500 MG, BID
     Route: 048
     Dates: end: 20110310
  3. EXJADE [Suspect]
     Dosage: 500 MG, DAILY
     Route: 048
     Dates: start: 20110902

REACTIONS (7)
  - NAUSEA [None]
  - ABDOMINAL PAIN [None]
  - HAEMATOCHEZIA [None]
  - ABDOMINAL PAIN UPPER [None]
  - VOMITING [None]
  - DYSPEPSIA [None]
  - DIARRHOEA [None]
